FAERS Safety Report 7417415-X (Version None)
Quarter: 2011Q2

REPORT INFORMATION
  Report Type: 
  Country: None (occurrence: None)
  Receive Date: 20110412
  Receipt Date: 20110412
  Transmission Date: 20111010
  Serious: Yes (Hospitalization)
  Sender: FDA-Public Use
  Company Number: None

PATIENT
  Sex: Male
  Weight: 92.5338 kg

DRUGS (1)
  1. ZYPREXA [Suspect]
     Dosage: 4 (OR 40) MG 3X DAY ORAL
     Route: 048
     Dates: start: 20110214, end: 20110225

REACTIONS (2)
  - UNEVALUABLE EVENT [None]
  - IMPULSIVE BEHAVIOUR [None]
